FAERS Safety Report 5972246-2 (Version None)
Quarter: 2008Q4

REPORT INFORMATION
  Report Type: 
  Country: None (occurrence: None)
  Receive Date: 20081201
  Receipt Date: 20071206
  Transmission Date: 20090506
  Serious: No
  Sender: FDA-Public Use
  Company Number: US-TEVA-165664USA

PATIENT
  Sex: Female

DRUGS (3)
  1. SALBUTAMOL SULFATE INHALATION, 0.09 MG [Suspect]
     Dosage: 2 PUFFS PRN
     Route: 055
     Dates: start: 20070701
  2. DRENAMIN [Concomitant]
  3. PURIFICATION [Concomitant]

REACTIONS (2)
  - EYE PAIN [None]
  - SWELLING [None]
